FAERS Safety Report 21008867 (Version 1)
Quarter: 2022Q2

REPORT INFORMATION
  Report Type: Spontaneous
  Country: US (occurrence: None)
  Receive Date: 20220625
  Receipt Date: 20220625
  Transmission Date: 20220721
  Serious: Yes (Disabling, Other)
  Sender: FDA-Public Use
  Company Number: None

PATIENT
  Age: 62 Year
  Sex: Female
  Weight: 90.9 kg

DRUGS (15)
  1. PAXLOVID [Suspect]
     Active Substance: NIRMATRELVIR\RITONAVIR
     Indication: SARS-CoV-2 test positive
     Dosage: FREQUENCY : TWICE A DAY;?
     Route: 048
     Dates: start: 20220510, end: 20220514
  2. Levithoroxine [Concomitant]
  3. LEXAPRO [Concomitant]
     Active Substance: ESCITALOPRAM OXALATE
  4. hydroclorthyizide [Concomitant]
  5. ESTRADIOL [Concomitant]
     Active Substance: ESTRADIOL
  6. IBUPROFEN [Concomitant]
     Active Substance: IBUPROFEN
  7. ESCITALOPRAM [Concomitant]
     Active Substance: ESCITALOPRAM OXALATE
  8. FLEXERIL [Concomitant]
     Active Substance: CYCLOBENZAPRINE HYDROCHLORIDE
  9. POTASSIUM [Concomitant]
     Active Substance: POTASSIUM
  10. GABAPENTIN [Concomitant]
     Active Substance: GABAPENTIN
  11. NORCO [Concomitant]
     Active Substance: ACETAMINOPHEN\HYDROCODONE BITARTRATE
  12. diclofenac topical gel [Concomitant]
  13. VITAMIN D3 [Concomitant]
     Active Substance: CHOLECALCIFEROL
  14. BIOFREEZE [Concomitant]
     Active Substance: MENTHOL
  15. IBUPROFEN [Concomitant]
     Active Substance: IBUPROFEN

REACTIONS (6)
  - Nerve injury [None]
  - Paraesthesia [None]
  - Dysstasia [None]
  - Grip strength decreased [None]
  - Musculoskeletal stiffness [None]
  - Impaired quality of life [None]

NARRATIVE: CASE EVENT DATE: 20220513
